FAERS Safety Report 7243130-1 (Version None)
Quarter: 2011Q1

REPORT INFORMATION
  Report Type: 
  Country: None (occurrence: None)
  Receive Date: 20110118
  Receipt Date: 20110111
  Transmission Date: 20110831
  Serious: Yes (Other)
  Sender: FDA-Public Use
  Company Number: 2011MA000305

PATIENT
  Age: 54 Year
  Sex: Male

DRUGS (13)
  1. HALOPERIDOL [Concomitant]
  2. THIAMINE [Concomitant]
  3. DECAPEPTYL SR [Concomitant]
  4. ONDANSETRON [Concomitant]
  5. DIAZEPAM [Suspect]
     Indication: PRODUCT USED FOR UNKNOWN INDICATION
     Dosage: 5 MG, BID,
     Dates: start: 20101124
  6. CLEXANE [Concomitant]
  7. LORAZEPAM [Concomitant]
  8. FERROUS SULFATE TAB [Concomitant]
  9. OMEPRAZOLE [Concomitant]
  10. PROCYCLIDINE [Concomitant]
  11. CLOZAPRIL (CLOZAPINE) [Suspect]
     Indication: SCHIZOPHRENIA
     Dosage: 150 MG, BID, PO
     Route: 048
     Dates: start: 20101108
  12. MIRTAZAPINE [Concomitant]
  13. BISACODYL [Concomitant]

REACTIONS (4)
  - TACHYCARDIA [None]
  - HALLUCINATION [None]
  - AGITATION [None]
  - SOMNOLENCE [None]
